FAERS Safety Report 8609624-9 (Version None)
Quarter: 2012Q3

REPORT INFORMATION
  Report Type: 
  Country: None (occurrence: None)
  Receive Date: 20120423
  Receipt Date: 20090518
  Transmission Date: 20120928
  Serious: Yes (Other)
  Sender: FDA-Public Use
  Company Number: PHEH2008US11113

PATIENT
  Sex: Female

DRUGS (1)
  1. FEMARA [Suspect]

REACTIONS (5)
  - WEIGHT DECREASED [None]
  - CEREBROVASCULAR ACCIDENT [None]
  - FEELING COLD [None]
  - BLOOD CHOLESTEROL DECREASED [None]
  - WEIGHT INCREASED [None]
